FAERS Safety Report 25499931 (Version 1)
Quarter: 2025Q2

REPORT INFORMATION
  Report Type: Spontaneous
  Country: US (occurrence: None)
  Receive Date: 20250628
  Receipt Date: 20250628
  Transmission Date: 20250716
  Serious: Yes (Other)
  Sender: FDA-CTU
  Company Number: None

PATIENT
  Age: 30 Year
  Sex: Female
  Weight: 77.4 kg

DRUGS (1)
  1. SOFDRA [Suspect]
     Active Substance: SOFPIRONIUM BROMIDE
     Indication: Hyperhidrosis

REACTIONS (4)
  - Vision blurred [None]
  - Urinary retention [None]
  - Application site irritation [None]
  - Dermatitis [None]

NARRATIVE: CASE EVENT DATE: 20250628
